FAERS Safety Report 4810278-8 (Version None)
Quarter: 2005Q4

REPORT INFORMATION
  Report Type: 
  Country: None (occurrence: None)
  Receive Date: 20051025
  Receipt Date: 20051025
  Transmission Date: 20060501
  Serious: Yes (Other)
  Sender: FDA-Public Use
  Company Number: None

PATIENT
  Age: 81 Year
  Sex: Male
  Weight: 65.5 kg

DRUGS (10)
  1. ZOLPIDEM [Suspect]
  2. FERROUS SULFATE TAB [Concomitant]
  3. SIMVASTATIN [Concomitant]
  4. OMEPRAZOLE [Concomitant]
  5. DONEPEZIL HCL [Concomitant]
  6. PAROXETINE HCL [Concomitant]
  7. LISINOPRIL [Concomitant]
  8. DILANTIN [Concomitant]
  9. RESOURCE FRUIT BEV [Concomitant]
  10. CLOPIDOGREL BISULFATE [Concomitant]

REACTIONS (1)
  - AGITATION [None]
